FAERS Safety Report 25936369 (Version 1)
Quarter: 2025Q4

REPORT INFORMATION
  Report Type: Spontaneous
  Country: EU (occurrence: EU)
  Receive Date: 20251017
  Receipt Date: 20251017
  Transmission Date: 20260118
  Serious: Yes (Hospitalization, Other)
  Sender: INCYTE
  Company Number: EU-002147023-NVSC2025HU158338

PATIENT
  Age: 47 Year

DRUGS (4)
  1. RUXOLITINIB [Suspect]
     Active Substance: RUXOLITINIB
     Indication: Primary myelofibrosis
     Dosage: 10 MG, BID
     Route: 065
  2. RUXOLITINIB [Suspect]
     Active Substance: RUXOLITINIB
     Indication: Polycythaemia vera
     Dosage: 5 MG, BID
     Route: 065
  3. ASPIRIN [Suspect]
     Active Substance: ASPIRIN
     Indication: Product used for unknown indication
     Dosage: UNK
     Route: 065
  4. WARFARIN [Concomitant]
     Active Substance: WARFARIN
     Indication: Product used for unknown indication
     Dosage: UNK
     Route: 065

REACTIONS (13)
  - Angina pectoris [Unknown]
  - Myocardial infarction [Unknown]
  - Sigmoid sinus thrombosis [Unknown]
  - Transverse sinus thrombosis [Unknown]
  - Adenocarcinoma [Unknown]
  - Platelet count decreased [Recovering/Resolving]
  - Haematocrit decreased [Recovered/Resolved]
  - Angiopathy [Unknown]
  - Headache [Recovered/Resolved]
  - Heavy menstrual bleeding [Unknown]
  - Uterine polyp [Unknown]
  - Jugular vein thrombosis [Unknown]
  - Headache [Recovering/Resolving]
